FAERS Safety Report 5925185-7 (Version None)
Quarter: 2008Q4

REPORT INFORMATION
  Report Type: 
  Country: None (occurrence: None)
  Receive Date: 20081020
  Receipt Date: 20081020
  Transmission Date: 20090506
  Serious: Yes (Hospitalization)
  Sender: FDA-Public Use
  Company Number: None

PATIENT
  Age: 29 Year
  Sex: Female
  Weight: 56.6996 kg

DRUGS (2)
  1. PAROXETINE HCL [Suspect]
     Indication: ANXIETY
     Dosage: 20 MG DAILY PO
     Route: 048
     Dates: start: 20070201, end: 20080225
  2. DEXTROMETHORPHAN NYQUIL [Suspect]
     Indication: INFLUENZA LIKE ILLNESS
     Dosage: 30 MG DAILY FOR 10 DAYS PO
     Route: 048
     Dates: start: 20070209, end: 20080223

REACTIONS (2)
  - DRUG INTERACTION [None]
  - DRUG TOXICITY [None]
